FAERS Safety Report 16881091 (Version 1)
Quarter: 2019Q4

REPORT INFORMATION
  Report Type: Spontaneous
  Country: US (occurrence: US)
  Receive Date: 20191003
  Receipt Date: 20191003
  Transmission Date: 20200122
  Serious: Yes (Hospitalization, Other)
  Sender: FDA-Public Use
  Company Number: US-ALEMBIC PHARMACUETICALS LIMITED-2019SCAL000725

PATIENT

DRUGS (2)
  1. LITHIUM CARBONATE. [Suspect]
     Active Substance: LITHIUM CARBONATE
     Indication: SCHIZOAFFECTIVE DISORDER
     Dosage: 600 MILLIGRAM
     Route: 065
  2. LITHIUM CARBONATE. [Suspect]
     Active Substance: LITHIUM CARBONATE
     Dosage: 1200 MILLIGRAM
     Dates: end: 201609

REACTIONS (11)
  - Thyroid mass [Recovered/Resolved]
  - Lethargy [Recovered/Resolved]
  - Chronic kidney disease [Unknown]
  - Proteinuria [Unknown]
  - Nephrogenic diabetes insipidus [Recovered/Resolved]
  - Toxicity to various agents [Recovered/Resolved]
  - Glomerular filtration rate decreased [Recovered/Resolved]
  - Hyperparathyroidism [Recovered/Resolved]
  - Parathyroid tumour benign [Recovered/Resolved]
  - Hypercalcaemia [Recovered/Resolved]
  - Blood sodium increased [Recovered/Resolved]
